FAERS Safety Report 14896595 (Version 1)
Quarter: 2018Q2

REPORT INFORMATION
  Report Type: Spontaneous
  Country: AR (occurrence: AR)
  Receive Date: 20180515
  Receipt Date: 20180515
  Transmission Date: 20180711
  Serious: Yes (Other)
  Sender: FDA-Public Use
  Company Number: AR-PFIZER INC-2018196063

PATIENT
  Sex: Female

DRUGS (1)
  1. IBRANCE [Suspect]
     Active Substance: PALBOCICLIB
     Indication: BREAST CANCER METASTATIC
     Dosage: UNK

REACTIONS (2)
  - Fall [Recovered/Resolved]
  - Lower limb fracture [Recovered/Resolved]
